FAERS Safety Report 7894037-8 (Version None)
Quarter: 2011Q4

REPORT INFORMATION
  Report Type: 
  Country: None (occurrence: None)
  Receive Date: 20111104
  Receipt Date: 20111017
  Transmission Date: 20120403
  Serious: Yes (Hospitalization, Other)
  Sender: FDA-Public Use
  Company Number: CA-JNJFOC-20111009845

PATIENT
  Sex: Male
  Weight: 91 kg

DRUGS (6)
  1. MS CONTIN [Concomitant]
  2. FOLIC ACID [Concomitant]
  3. REMICADE [Suspect]
     Route: 042
     Dates: start: 20110701
  4. NEXIUM [Concomitant]
  5. METHOTREXATE [Concomitant]
  6. REMICADE [Suspect]
     Indication: RHEUMATOID ARTHRITIS
     Route: 042
     Dates: start: 20110822

REACTIONS (3)
  - LOSS OF CONSCIOUSNESS [None]
  - INTESTINAL OBSTRUCTION [None]
  - VOLVULUS [None]
